FAERS Safety Report 4497502-9 (Version None)
Quarter: 2004Q4

REPORT INFORMATION
  Report Type: 
  Country: None (occurrence: None)
  Receive Date: 20041104
  Receipt Date: 20041029
  Transmission Date: 20050328
  Serious: Yes (Hospitalization)
  Sender: FDA-Public Use
  Company Number: 200412994GDS

PATIENT
  Age: 93 Year
  Sex: Female

DRUGS (5)
  1. ASPIRIN [Suspect]
     Dosage: 100 MG, TOTAL DAILY, ORAL
     Route: 048
  2. FUROSEMIDE [Suspect]
     Dosage: 40 MG, BID, ORAL
     Route: 048
     Dates: end: 20041011
  3. SPIRONOLACTONE [Suspect]
     Dosage: 50 MG, TOTAL DAILY, ORAL
     Route: 048
     Dates: end: 20041011
  4. AMIODARONE [Concomitant]
  5. CODEINE W/GUAIFENESIN [Concomitant]

REACTIONS (3)
  - BLOOD CREATININE INCREASED [None]
  - HYPERKALAEMIA [None]
  - SYNCOPE [None]
